FAERS Safety Report 18268218 (Version 1)
Quarter: 2020Q3

REPORT INFORMATION
  Report Type: Spontaneous
  Country: US (occurrence: US)
  Receive Date: 20200915
  Receipt Date: 20200915
  Transmission Date: 20201103
  Serious: No
  Sender: FDA-Public Use
  Company Number: US-PERRIGO-19US012439

PATIENT
  Age: 65 Year
  Sex: Male
  Weight: 117.91 kg

DRUGS (4)
  1. ELIQUIS [Concomitant]
     Active Substance: APIXABAN
     Indication: ATRIAL FIBRILLATION
     Dosage: UNK
     Route: 065
     Dates: start: 2018
  2. TESTOSTERONE. [Suspect]
     Active Substance: TESTOSTERONE
     Indication: BLOOD TESTOSTERONE DECREASED
     Dosage: 20.25 MG, QD
     Route: 061
     Dates: start: 20190808, end: 20190921
  3. TESTOSTERONE. [Suspect]
     Active Substance: TESTOSTERONE
     Dosage: 20.25 MG, QD
     Route: 061
     Dates: start: 20190928, end: 20191016
  4. LOSARTAN. [Concomitant]
     Active Substance: LOSARTAN
     Indication: HYPERTENSION
     Dosage: UNK
     Route: 065

REACTIONS (3)
  - Drug ineffective [Unknown]
  - Headache [Not Recovered/Not Resolved]
  - Blood pressure increased [Not Recovered/Not Resolved]

NARRATIVE: CASE EVENT DATE: 201908
